FAERS Safety Report 5037410-8 (Version None)
Quarter: 2006Q2

REPORT INFORMATION
  Report Type: 
  Country: None (occurrence: None)
  Receive Date: 20060601
  Receipt Date: 20060207
  Transmission Date: 20061013
  Serious: No
  Sender: FDA-Public Use
  Company Number: 2006PV008274

PATIENT
  Age: 56 Year
  Sex: Female
  Weight: 89.8122 kg

DRUGS (4)
  1. BYETTA [Suspect]
     Indication: DIABETES MELLITUS NON-INSULIN-DEPENDENT
     Dosage: 5 MCG;BID;SC
     Route: 058
     Dates: start: 20060121
  2. ACTOS [Concomitant]
  3. BLUCOPHAGE ^BRISTOL-MYERS SQUIBB^ [Concomitant]
  4. GLUCOTROL [Concomitant]

REACTIONS (6)
  - DECREASED APPETITE [None]
  - ENERGY INCREASED [None]
  - FEELING JITTERY [None]
  - LIBIDO INCREASED [None]
  - NAUSEA [None]
  - WEIGHT DECREASED [None]
